FAERS Safety Report 10221129 (Version 2)
Quarter: 2014Q3

REPORT INFORMATION
  Report Type: Spontaneous
  Country: US (occurrence: None)
  Receive Date: 20140604
  Receipt Date: 20140820
  Transmission Date: 20150326
  Serious: Yes (Hospitalization)
  Sender: FDA-Public Use
  Company Number: US-001002

PATIENT
  Sex: Male

DRUGS (2)
  1. SOLUTIONS FOR PARENTERAL NUTRITION [Concomitant]
     Active Substance: AMINO ACIDS\DEXTROSE\ELECTROLYTES NOS
  2. GATTEX [Suspect]
     Active Substance: TEDUGLUTIDE\WATER
     Indication: SHORT-BOWEL SYNDROME
     Dosage: FEQU: ONCE A DAY
     Route: 058
     Dates: start: 20140319

REACTIONS (13)
  - Blood potassium decreased [None]
  - Weight decreased [None]
  - Pain [None]
  - Loss of consciousness [None]
  - Infection [None]
  - Pneumonia [None]
  - Anxiety [None]
  - Overdose [None]
  - Vomiting [None]
  - Fall [None]
  - Nausea [None]
  - Malaise [None]
  - Diarrhoea [None]

NARRATIVE: CASE EVENT DATE: 2014
